FAERS Safety Report 11465646 (Version 2)
Quarter: 2015Q4

REPORT INFORMATION
  Report Type: Spontaneous
  Country: GB (occurrence: GB)
  Receive Date: 20150907
  Receipt Date: 20151009
  Transmission Date: 20160304
  Serious: Yes (Hospitalization)
  Sender: FDA-Public Use
  Company Number: GB-DRREDDYS-GER/UKI/15/0050424

PATIENT
  Age: 22 Year
  Sex: Female

DRUGS (21)
  1. MONTELUKAST [Suspect]
     Active Substance: MONTELUKAST SODIUM
  2. FLUCONAZOLE. [Suspect]
     Active Substance: FLUCONAZOLE
     Indication: PRODUCT USED FOR UNKNOWN INDICATION
  3. FOLIC ACID. [Suspect]
     Active Substance: FOLIC ACID
     Indication: PRODUCT USED FOR UNKNOWN INDICATION
  4. HYOSCINE HYDROBROMIDE [Suspect]
     Active Substance: SCOPOLAMINE
  5. FERROUS FUMARATE [Suspect]
     Active Substance: FERROUS FUMARATE
  6. PRIADEL [Suspect]
     Active Substance: LITHIUM CARBONATE
     Dates: start: 20150727
  7. ZAPONEX [Suspect]
     Active Substance: CLOZAPINE
     Route: 048
     Dates: start: 20150727, end: 201509
  8. PAROXETIN [Suspect]
     Active Substance: PAROXETINE HYDROCHLORIDE
  9. FLUCONAZOLE. [Suspect]
     Active Substance: FLUCONAZOLE
  10. FOLIC ACID. [Suspect]
     Active Substance: FOLIC ACID
  11. HYOSCINE HYDROBROMIDE [Suspect]
     Active Substance: SCOPOLAMINE
     Indication: PRODUCT USED FOR UNKNOWN INDICATION
  12. FOSTAIR [Concomitant]
     Active Substance: BECLOMETHASONE\FORMOTEROL
     Indication: PRODUCT USED FOR UNKNOWN INDICATION
     Route: 055
  13. MONTELUKAST [Suspect]
     Active Substance: MONTELUKAST SODIUM
     Indication: PRODUCT USED FOR UNKNOWN INDICATION
  14. PRIADEL [Suspect]
     Active Substance: LITHIUM CARBONATE
     Indication: PRODUCT USED FOR UNKNOWN INDICATION
  15. LANSOPRAZOLE. [Suspect]
     Active Substance: LANSOPRAZOLE
     Indication: PRODUCT USED FOR UNKNOWN INDICATION
  16. PAROXETIN [Suspect]
     Active Substance: PAROXETINE HYDROCHLORIDE
     Indication: PRODUCT USED FOR UNKNOWN INDICATION
  17. ZAPONEX [Suspect]
     Active Substance: CLOZAPINE
     Indication: PRODUCT USED FOR UNKNOWN INDICATION
     Dosage: 50MG IN THE MORNING, 150MG IN THE EVENING, 175MG AT NIGHT
     Route: 048
     Dates: start: 20131024, end: 20150722
  18. FERROUS FUMARATE [Suspect]
     Active Substance: FERROUS FUMARATE
     Indication: PRODUCT USED FOR UNKNOWN INDICATION
  19. LANSOPRAZOLE. [Suspect]
     Active Substance: LANSOPRAZOLE
  20. PRIADEL [Suspect]
     Active Substance: LITHIUM CARBONATE
     Dates: end: 20150722
  21. ZAPONEX [Suspect]
     Active Substance: CLOZAPINE
     Route: 048
     Dates: start: 20150723, end: 20150723

REACTIONS (3)
  - Fatigue [Unknown]
  - Intentional overdose [Recovered/Resolved]
  - Overdose [Recovered/Resolved]

NARRATIVE: CASE EVENT DATE: 20150723
